FAERS Safety Report 6977556-8 (Version None)
Quarter: 2010Q3

REPORT INFORMATION
  Report Type: 
  Country: None (occurrence: None)
  Receive Date: 20100912
  Receipt Date: 20100906
  Transmission Date: 20110219
  Serious: Yes (Hospitalization)
  Sender: FDA-Public Use
  Company Number: FR-MERCK-1009FRA00015

PATIENT
  Age: 15 Year
  Sex: Female

DRUGS (4)
  1. CANCIDAS [Suspect]
     Route: 041
     Dates: start: 20100810, end: 20100817
  2. PRIMAXIN [Suspect]
     Route: 041
     Dates: start: 20100810, end: 20100817
  3. ACUPAN [Suspect]
     Route: 042
     Dates: start: 20100813, end: 20100817
  4. VANCOMYCIN HYDROCHLORIDE [Concomitant]
     Route: 065
     Dates: start: 20100806, end: 20100815

REACTIONS (1)
  - CONVULSION [None]
